FAERS Safety Report 24613919 (Version 2)
Quarter: 2024Q4

REPORT INFORMATION
  Report Type: Spontaneous
  Country: BE (occurrence: BE)
  Receive Date: 20241113
  Receipt Date: 20241120
  Transmission Date: 20250115
  Serious: Yes (Life-Threatening, Hospitalization, Other)
  Sender: MERCK
  Company Number: BE-009507513-2411BEL002182

PATIENT
  Age: 76 Year
  Sex: Female

DRUGS (1)
  1. PEMBROLIZUMAB [Suspect]
     Active Substance: PEMBROLIZUMAB
     Indication: Malignant melanoma stage III
     Dosage: UNK

REACTIONS (4)
  - Myocarditis-myositis-myasthenia gravis overlap syndrome [Recovering/Resolving]
  - Immune-mediated hepatitis [Unknown]
  - Immune-mediated thyroiditis [Unknown]
  - Hypothyroidism [Unknown]
